FAERS Safety Report 14348771 (Version 1)
Quarter: 2018Q1

REPORT INFORMATION
  Report Type: Spontaneous
  Country: US (occurrence: US)
  Receive Date: 20180104
  Receipt Date: 20180104
  Transmission Date: 20180509
  Serious: No
  Sender: FDA-Public Use
  Company Number: PHEH2017US042422

PATIENT
  Sex: Female

DRUGS (1)
  1. ENTRESTO [Suspect]
     Active Substance: SACUBITRIL\VALSARTAN
     Indication: CARDIAC DISORDER
     Route: 065

REACTIONS (6)
  - Asthenia [Unknown]
  - Muscle disorder [Unknown]
  - Gait disturbance [Unknown]
  - Stress [Unknown]
  - Drug prescribing error [Unknown]
  - Pain [Unknown]
